FAERS Safety Report 5319669-2 (Version None)
Quarter: 2007Q2

REPORT INFORMATION
  Report Type: 
  Country: None (occurrence: None)
  Receive Date: 20070508
  Receipt Date: 20070503
  Transmission Date: 20071010
  Serious: Yes (Hospitalization)
  Sender: FDA-Public Use
  Company Number: AU-MERCK-0705AUS00037

PATIENT
  Age: 86 Year
  Sex: Female

DRUGS (2)
  1. FOSAMAX [Suspect]
     Indication: OSTEOPOROSIS
     Route: 048
     Dates: start: 20030101, end: 20070201
  2. CALCIUM (UNSPECIFIED) [Concomitant]
     Route: 065

REACTIONS (3)
  - GASTROINTESTINAL CARCINOMA [None]
  - NEPHROTIC SYNDROME [None]
  - OEDEMA PERIPHERAL [None]
